FAERS Safety Report 5137386-9 (Version None)
Quarter: 2006Q4

REPORT INFORMATION
  Report Type: 
  Country: None (occurrence: None)
  Receive Date: 20061030
  Receipt Date: 20051024
  Transmission Date: 20070319
  Serious: No
  Sender: FDA-Public Use
  Company Number: US-GLAXOSMITHKLINE-A0579395A

PATIENT
  Age: 41 Year
  Sex: Female

DRUGS (9)
  1. ADVAIR HFA [Suspect]
     Indication: CHRONIC OBSTRUCTIVE PULMONARY DISEASE
     Dosage: 1PUFF TWICE PER DAY
     Route: 055
  2. DILANTIN [Concomitant]
  3. HALDOL [Concomitant]
  4. LITHIUM CARBONATE [Concomitant]
  5. BACLOFEN [Concomitant]
  6. XANAX [Concomitant]
  7. COGENTIN [Concomitant]
  8. IMITREX [Concomitant]
  9. ALBUTEROL [Concomitant]

REACTIONS (2)
  - DYSPHONIA [None]
  - PHARYNGOLARYNGEAL PAIN [None]
